FAERS Safety Report 16080996 (Version 5)
Quarter: 2019Q2

REPORT INFORMATION
  Report Type: Spontaneous
  Country: CA (occurrence: CA)
  Receive Date: 20190316
  Receipt Date: 20190626
  Transmission Date: 20190711
  Serious: Yes (Hospitalization, Other)
  Sender: FDA-Public Use
  Company Number: CA-CELLTRION INC.-2019CA019351

PATIENT

DRUGS (33)
  1. APO PANTOPRAZOLE [Concomitant]
     Dosage: 40 MG, UNK
  2. LAX-A-DAY [Concomitant]
     Dosage: UNK
     Route: 048
  3. FLORINEF ACETATE [Concomitant]
     Active Substance: FLUDROCORTISONE ACETATE
     Dosage: 0.1 MG, UNK
  4. ACETAMINOPHEN. [Concomitant]
     Active Substance: ACETAMINOPHEN
     Indication: PREMEDICATION
     Dosage: 650 MG, UNK
     Route: 048
     Dates: start: 20190228
  5. PREGABALIN TEVA [Concomitant]
     Dosage: 25 MG, UNK
  6. EURO ASA EC [Concomitant]
     Dosage: 80 MG, UNK
  7. SALBUTAMOL TEVA [Concomitant]
     Active Substance: ALBUTEROL
     Dosage: 100 UG, UNK
  8. INFLECTRA [Suspect]
     Active Substance: INFLIXIMAB-DYYB
     Dosage: 5 MG/KG, EVERY 6 WEEKS
     Route: 042
     Dates: start: 20190228
  9. SOLU-MEDROL [Concomitant]
     Active Substance: METHYLPREDNISOLONE SODIUM SUCCINATE
     Dosage: 250 MG, UNK
     Route: 042
     Dates: start: 20190402
  10. PREDNISONE TEVA [Concomitant]
     Active Substance: PREDNISONE
     Dosage: 50 MG, UNK
  11. PREDNISONE TEVA [Concomitant]
     Active Substance: PREDNISONE
     Dosage: 75 MG, UNK
  12. SYNTHROID [Concomitant]
     Active Substance: LEVOTHYROXINE SODIUM
     Dosage: 50 UG, UNK
  13. APO LEVOFLOXACIN [Concomitant]
     Active Substance: LEVOFLOXACIN
     Dosage: 500 MG, UNK
  14. SELAX [Concomitant]
     Dosage: 100 MG, UNK
  15. LIDOCAINE. [Concomitant]
     Active Substance: LIDOCAINE
     Dosage: UNK
     Route: 061
  16. INFLECTRA [Suspect]
     Active Substance: INFLIXIMAB-DYYB
     Indication: ANKYLOSING SPONDYLITIS
     Dosage: 5 MG/KG, EVERY 6 WEEKS
     Route: 042
     Dates: start: 20190213
  17. GESIC [INDOMETACIN] [Concomitant]
     Dosage: 325 MG, UNK
  18. TEVA ROSUVASTATIN [Concomitant]
     Dosage: 10 MG, UNK
  19. KETODERM [KETOCONAZOLE] [Concomitant]
     Dosage: 2 %
     Route: 061
  20. APO FLUCONAZOLE [Concomitant]
     Dosage: 50 MG, UNK
  21. PMS-NYSTATIN [Concomitant]
     Dosage: 100000 IU/ML, UNK
  22. KINERET [Concomitant]
     Active Substance: ANAKINRA
     Dosage: 100 MG/0.57 ML, UNK
  23. KETAMINE [Concomitant]
     Active Substance: KETAMINE
     Dosage: UNK
  24. INFLECTRA [Suspect]
     Active Substance: INFLIXIMAB-DYYB
     Dosage: 5 MG/KG, EVERY 6 WEEKS
     Route: 042
     Dates: start: 20190330, end: 20190330
  25. PREGABALIN TEVA [Concomitant]
     Dosage: 25 MG, 2X/DAY
  26. EURO D [Concomitant]
     Dosage: 10000 IU, UNK
  27. INFLECTRA [Suspect]
     Active Substance: INFLIXIMAB-DYYB
     Dosage: 5 MG/KG, EVERY 6 WEEKS
     Route: 042
     Dates: start: 20190228
  28. RANITIDINE. [Concomitant]
     Active Substance: RANITIDINE
     Dosage: 150 MG, UNK
  29. ALENDRONATE TEVA [Concomitant]
     Active Substance: ALENDRONATE SODIUM
     Dosage: 70 MG, UNK
  30. PREDNISONE TEVA [Concomitant]
     Active Substance: PREDNISONE
     Dosage: 5 MG (MULTIPLE COURSES)
  31. PMS DUTASTERIDE [Concomitant]
     Dosage: 0.5 MG, UNK
  32. TRAZODONE [Concomitant]
     Active Substance: TRAZODONE HYDROCHLORIDE
     Dosage: 50 MG, UNK
  33. SULFATRIM [Concomitant]
     Active Substance: SULFAMETHOXAZOLE\TRIMETHOPRIM
     Dosage: 800 + 160 MG

REACTIONS (19)
  - Heart rate increased [Not Recovered/Not Resolved]
  - Fall [Unknown]
  - Eye contusion [Unknown]
  - Condition aggravated [Not Recovered/Not Resolved]
  - Treatment failure [Unknown]
  - Abdominal pain [Not Recovered/Not Resolved]
  - Blood test abnormal [Unknown]
  - Body temperature abnormal [Unknown]
  - Sepsis [Unknown]
  - Mobility decreased [Unknown]
  - Hypersomnia [Unknown]
  - Asthenia [Unknown]
  - Pyrexia [Not Recovered/Not Resolved]
  - Constipation [Unknown]
  - Heart rate irregular [Unknown]
  - Chromaturia [Unknown]
  - Facial bones fracture [Unknown]
  - Influenza like illness [Unknown]
  - Rash [Not Recovered/Not Resolved]

NARRATIVE: CASE EVENT DATE: 201902
